FAERS Safety Report 11972412 (Version 1)
Quarter: 2016Q1

REPORT INFORMATION
  Report Type: Spontaneous
  Country: US (occurrence: US)
  Receive Date: 20160128
  Receipt Date: 20160128
  Transmission Date: 20160526
  Serious: No
  Sender: FDA-Public Use
  Company Number: US-GLAXOSMITHKLINE-US2016006592

PATIENT
  Sex: Male

DRUGS (24)
  1. LOSARTAN. [Concomitant]
     Active Substance: LOSARTAN
     Dosage: UNK
  2. NORTRIPTYLINE [Concomitant]
     Active Substance: NORTRIPTYLINE
     Dosage: UNK
  3. RANITIDINE [Concomitant]
     Active Substance: RANITIDINE\RANITIDINE HYDROCHLORIDE
     Dosage: UNK
  4. HYDROCODONE + APAP [Concomitant]
     Dosage: UNK
  5. CELEBREX [Concomitant]
     Active Substance: CELECOXIB
     Dosage: UNK
  6. ESCITALOPRAM [Concomitant]
     Active Substance: ESCITALOPRAM OXALATE
     Dosage: UNK
  7. IPRATROPIUM [Concomitant]
     Active Substance: IPRATROPIUM
     Dosage: UNK
  8. AMLODIPINE [Concomitant]
     Active Substance: AMLODIPINE BESYLATE
     Dosage: UNK
  9. CYCLOBENZAPRINE [Concomitant]
     Active Substance: CYCLOBENZAPRINE
     Dosage: UNK
  10. MAGNESIUM OXIDE. [Concomitant]
     Active Substance: MAGNESIUM OXIDE
     Dosage: UNK
  11. NYSTATIN. [Concomitant]
     Active Substance: NYSTATIN
     Dosage: UNK
  12. WARFARIN [Concomitant]
     Active Substance: WARFARIN
     Dosage: UNK
  13. ADVAIR DISKUS [Suspect]
     Active Substance: FLUTICASONE PROPIONATE\SALMETEROL XINAFOATE
     Indication: ASTHMA
     Dosage: 1 PUFF(S), BID
     Route: 055
     Dates: start: 201512
  14. TERAZOSIN [Concomitant]
     Active Substance: TERAZOSIN\TERAZOSIN HYDROCHLORIDE
     Dosage: UNK
  15. BIOTIN [Concomitant]
     Active Substance: BIOTIN
     Dosage: UNK
  16. CRESTOR [Concomitant]
     Active Substance: ROSUVASTATIN CALCIUM
     Dosage: UNK
  17. OMEPRAZOLE. [Concomitant]
     Active Substance: OMEPRAZOLE
     Dosage: UNK
  18. PREDNISONE. [Suspect]
     Active Substance: PREDNISONE
     Indication: PRODUCT USED FOR UNKNOWN INDICATION
     Dosage: UNK
  19. IBUPROFEN. [Concomitant]
     Active Substance: IBUPROFEN
     Dosage: UNK
  20. LORATADINE. [Concomitant]
     Active Substance: LORATADINE
     Dosage: UNK
  21. POTASSIUM CL [Concomitant]
     Active Substance: POTASSIUM CHLORIDE
     Dosage: UNK
  22. CARVEDILOL. [Concomitant]
     Active Substance: CARVEDILOL
     Dosage: UNK
  23. FUROSEMIDE. [Concomitant]
     Active Substance: FUROSEMIDE
     Dosage: UNK
  24. ISOSORBIDE MONOHYDRATE [Concomitant]
     Dosage: UNK

REACTIONS (4)
  - Drug ineffective [Unknown]
  - Dyspnoea [Not Recovered/Not Resolved]
  - Emergency care examination [Unknown]
  - Decreased activity [Unknown]
